FAERS Safety Report 18601892 (Version 1)
Quarter: 2020Q4

REPORT INFORMATION
  Report Type: Report from Study
  Country: DE (occurrence: DE)
  Receive Date: 20201210
  Receipt Date: 20201210
  Transmission Date: 20210114
  Serious: Yes (Hospitalization)
  Sender: FDA-Public Use
  Company Number: DE-SHIRE-DE202026971

PATIENT
  Age: 72 Year
  Sex: Female

DRUGS (28)
  1. TEDUGLUTIDE [Suspect]
     Active Substance: TEDUGLUTIDE
     Dosage: 2.6 MILLIGRAM, 1X/DAY:QD
     Route: 065
     Dates: start: 201606, end: 201801
  2. TEDUGLUTIDE [Suspect]
     Active Substance: TEDUGLUTIDE
     Dosage: 1.3 MILLIGRAM, 1X/DAY:QD
     Route: 065
     Dates: start: 201801, end: 201909
  3. TEDUGLUTIDE [Suspect]
     Active Substance: TEDUGLUTIDE
     Dosage: 3.5 MILLIGRAM, 1X/DAY:QD
     Route: 065
     Dates: start: 201909, end: 202004
  4. TEDUGLUTIDE [Suspect]
     Active Substance: TEDUGLUTIDE
     Dosage: 3.5 MILLIGRAM, 1X/DAY:QD
     Route: 065
     Dates: start: 20200720
  5. AGOMELATIN [Concomitant]
     Active Substance: AGOMELATINE
     Indication: DEPRESSION
  6. TEDUGLUTIDE [Suspect]
     Active Substance: TEDUGLUTIDE
     Dosage: 1.3 MILLIGRAM, 1X/DAY:QD
     Route: 065
     Dates: start: 201801, end: 201909
  7. TEDUGLUTIDE [Suspect]
     Active Substance: TEDUGLUTIDE
     Dosage: 3.5 MILLIGRAM, 1X/DAY:QD
     Route: 065
     Dates: start: 20200720
  8. TEDUGLUTIDE [Suspect]
     Active Substance: TEDUGLUTIDE
     Indication: SHORT-BOWEL SYNDROME
     Dosage: 1.2 MILLIGRAM, 1X/DAY:QD
     Route: 065
     Dates: start: 20151228, end: 201606
  9. TEDUGLUTIDE [Suspect]
     Active Substance: TEDUGLUTIDE
     Indication: SHORT-BOWEL SYNDROME
     Dosage: 1.2 MILLIGRAM, 1X/DAY:QD
     Route: 065
     Dates: start: 20151228, end: 201606
  10. TEDUGLUTIDE [Suspect]
     Active Substance: TEDUGLUTIDE
     Dosage: 2.6 MILLIGRAM, 1X/DAY:QD
     Route: 065
     Dates: start: 201606, end: 201801
  11. TEDUGLUTIDE [Suspect]
     Active Substance: TEDUGLUTIDE
     Dosage: 2.6 MILLIGRAM, 1X/DAY:QD
     Route: 065
     Dates: start: 201606, end: 201801
  12. TEDUGLUTIDE [Suspect]
     Active Substance: TEDUGLUTIDE
     Dosage: 1.3 MILLIGRAM, 1X/DAY:QD
     Route: 065
     Dates: start: 201801, end: 201909
  13. QUETIAPIN [Concomitant]
     Active Substance: QUETIAPINE
     Indication: DEPRESSION
  14. DULOXALTA [Concomitant]
     Active Substance: DULOXETINE HYDROCHLORIDE
     Indication: DEPRESSION
  15. TEDUGLUTIDE [Suspect]
     Active Substance: TEDUGLUTIDE
     Indication: SHORT-BOWEL SYNDROME
     Dosage: 1.2 MILLIGRAM, 1X/DAY:QD
     Route: 065
     Dates: start: 20151228, end: 201606
  16. TEDUGLUTIDE [Suspect]
     Active Substance: TEDUGLUTIDE
     Dosage: 3.5 MILLIGRAM, 1X/DAY:QD
     Route: 065
     Dates: start: 201909, end: 202004
  17. TEDUGLUTIDE [Suspect]
     Active Substance: TEDUGLUTIDE
     Dosage: 2.6 UNK
     Route: 065
     Dates: start: 20201116
  18. TEDUGLUTIDE [Suspect]
     Active Substance: TEDUGLUTIDE
     Dosage: 2.6 MILLIGRAM, 1X/DAY:QD
     Route: 065
     Dates: start: 201606, end: 201801
  19. TEDUGLUTIDE [Suspect]
     Active Substance: TEDUGLUTIDE
     Dosage: 1.3 MILLIGRAM, 1X/DAY:QD
     Route: 065
     Dates: start: 201801, end: 201909
  20. TEDUGLUTIDE [Suspect]
     Active Substance: TEDUGLUTIDE
     Dosage: 3.5 MILLIGRAM, 1X/DAY:QD
     Route: 065
     Dates: start: 201909, end: 202004
  21. TEDUGLUTIDE [Suspect]
     Active Substance: TEDUGLUTIDE
     Indication: SHORT-BOWEL SYNDROME
     Dosage: 1.2 MILLIGRAM, 1X/DAY:QD
     Route: 065
     Dates: start: 20151228, end: 201606
  22. TEDUGLUTIDE [Suspect]
     Active Substance: TEDUGLUTIDE
     Dosage: 3.5 MILLIGRAM, 1X/DAY:QD
     Route: 065
     Dates: start: 201909, end: 202004
  23. TEDUGLUTIDE [Suspect]
     Active Substance: TEDUGLUTIDE
     Dosage: 3.5 MILLIGRAM, 1X/DAY:QD
     Route: 065
     Dates: start: 20200720
  24. TEDUGLUTIDE [Suspect]
     Active Substance: TEDUGLUTIDE
     Dosage: 3.5 MILLIGRAM, 1X/DAY:QD
     Route: 065
     Dates: start: 20200720
  25. TEDUGLUTIDE [Suspect]
     Active Substance: TEDUGLUTIDE
     Dosage: 2.6 UNK
     Route: 065
     Dates: start: 20201116
  26. TEDUGLUTIDE [Suspect]
     Active Substance: TEDUGLUTIDE
     Dosage: 2.6 UNK
     Route: 065
     Dates: start: 20201116
  27. TEDUGLUTIDE [Suspect]
     Active Substance: TEDUGLUTIDE
     Dosage: 2.6 UNK
     Route: 065
     Dates: start: 20201116
  28. ZOPICLON [Concomitant]
     Active Substance: ZOPICLONE
     Indication: PRODUCT USED FOR UNKNOWN INDICATION

REACTIONS (4)
  - Hypokalaemia [Not Recovered/Not Resolved]
  - Device related infection [Recovered/Resolved]
  - Flatulence [Recovered/Resolved]
  - Diarrhoea [Recovered/Resolved]

NARRATIVE: CASE EVENT DATE: 201909
